FAERS Safety Report 5977320-2 (Version None)
Quarter: 2008Q4

REPORT INFORMATION
  Report Type: 
  Country: None (occurrence: None)
  Receive Date: 20081203
  Receipt Date: 20081124
  Transmission Date: 20090506
  Serious: Yes (Other)
  Sender: FDA-Public Use
  Company Number: PHBS2008TW06442

PATIENT
  Age: 57 Year
  Sex: Female

DRUGS (3)
  1. CLOZAPINE [Suspect]
     Indication: SCHIZOPHRENIA
     Dosage: UP TO 400 MG/DAY
  2. CLOZAPINE [Suspect]
     Dosage: 25 MG/DAY
  3. CLOZAPINE [Suspect]
     Dosage: 300 MG/DAY

REACTIONS (2)
  - DRUG INEFFECTIVE [None]
  - PLEUROTHOTONUS [None]
